FAERS Safety Report 17418542 (Version 1)
Quarter: 2020Q1

REPORT INFORMATION
  Report Type: Spontaneous
  Country: US (occurrence: US)
  Receive Date: 20200130
  Receipt Date: 20200130
  Transmission Date: 20200409
  Serious: Yes (Life-Threatening, Hospitalization)
  Sender: FDA-Public Use
  Company Number: None

PATIENT
  Age: 76 Year
  Sex: Male
  Weight: 63.05 kg

DRUGS (1)
  1. APIXABAN (APIXABAN 5MG TAB) [Suspect]
     Active Substance: APIXABAN
     Indication: PULMONARY EMBOLISM
     Route: 048
     Dates: start: 20190126, end: 20190505

REACTIONS (6)
  - Haemorrhagic stroke [None]
  - Brain stem haemorrhage [None]
  - Cognitive disorder [None]
  - Asthenia [None]
  - Dysphagia [None]
  - Subarachnoid haemorrhage [None]

NARRATIVE: CASE EVENT DATE: 20190505
